FAERS Safety Report 19193200 (Version 1)
Quarter: 2021Q2

REPORT INFORMATION
  Report Type: Report from Study
  Country: CA (occurrence: CA)
  Receive Date: 20210428
  Receipt Date: 20210428
  Transmission Date: 20210717
  Serious: Yes (Death)
  Sender: FDA-Public Use
  Company Number: CA-ASTRAZENECA-2021A273109

PATIENT
  Age: 27093 Day
  Sex: Male

DRUGS (12)
  1. ATORVASTATIN [Concomitant]
     Active Substance: ATORVASTATIN
  2. EYLEA [Concomitant]
     Active Substance: AFLIBERCEPT
  3. IMBRUVICA [Concomitant]
     Active Substance: IBRUTINIB
  4. ZOPICLONE [Concomitant]
     Active Substance: ZOPICLONE
  5. CALQUENCE [Suspect]
     Active Substance: ACALABRUTINIB
     Indication: CHRONIC LYMPHOCYTIC LEUKAEMIA
     Route: 048
     Dates: start: 20210320
  6. JANUVIA [Concomitant]
     Active Substance: SITAGLIPTIN PHOSPHATE
  7. WARFARIN [Concomitant]
     Active Substance: WARFARIN
  8. BASAGLAR [Concomitant]
     Active Substance: INSULIN GLARGINE
  9. RISEDRONATE [Concomitant]
     Active Substance: RISEDRONATE SODIUM
  10. PERINDOPRIL [Concomitant]
     Active Substance: PERINDOPRIL
  11. STATEX [Concomitant]
  12. BISOPROLOL [Concomitant]
     Active Substance: BISOPROLOL

REACTIONS (1)
  - Death [Fatal]

NARRATIVE: CASE EVENT DATE: 20210327
